FAERS Safety Report 8724599 (Version 3)
Quarter: 2012Q4

REPORT INFORMATION
  Report Type: 
  Country: DE (occurrence: DE)
  Receive Date: 20120815
  Receipt Date: 20121026
  Transmission Date: 20130627
  Serious: Yes (Hospitalization, Other)
  Sender: FDA-Public Use
  Company Number: DE-BAYER-2012-082833

PATIENT
  Age: 88 Year
  Sex: Female
  Weight: 44 kg

DRUGS (5)
  1. AVALOX [Suspect]
     Indication: SINUSITIS
     Dosage: 1 DF, QD
     Route: 048
     Dates: start: 20120521, end: 20120526
  2. MIRTAZAPINE [Suspect]
     Dosage: UNK UNK, TID
     Dates: start: 2012
  3. RAMIPRIL [Suspect]
     Indication: HYPERTENSION
     Dosage: 1 DF, QD
  4. BISOPROLOL [Suspect]
     Indication: HYPERTENSION
     Dosage: 1 DF, QD
  5. ASPIRIN [Suspect]
     Indication: CARDIAC DYSRHYTHMIAS

REACTIONS (10)
  - Delirium [Recovered/Resolved]
  - Circadian rhythm sleep disorder [Recovered/Resolved]
  - Blood pressure abnormal [Recovered/Resolved]
  - Mental disorder [Recovered/Resolved]
  - Infective glossitis [Recovered/Resolved]
  - Hallucination [Recovered/Resolved]
  - Back pain [None]
  - Oedema peripheral [None]
  - Depression [Recovered/Resolved]
  - Oedema peripheral [None]
